FAERS Safety Report 7821693-2 (Version None)
Quarter: 2011Q4

REPORT INFORMATION
  Report Type: 
  Country: None (occurrence: None)
  Receive Date: 20111018
  Receipt Date: 20111007
  Transmission Date: 20120403
  Serious: Yes (Other)
  Sender: FDA-Public Use
  Company Number: US-BAYER-200940829NA

PATIENT
  Sex: Male
  Weight: 83.9 kg

DRUGS (4)
  1. TRASYLOL [Suspect]
     Indication: CORONARY ARTERY BYPASS
     Dosage: UNK
     Route: 042
     Dates: start: 20020101
  2. ACETYLSALICYLIC ACID SRT [Concomitant]
     Dosage: UNK
     Dates: start: 19980101
  3. AVAPRO [Concomitant]
     Dosage: UNK
     Dates: start: 19980101
  4. SIMVASTATIN [Concomitant]
     Dosage: UNK
     Dates: start: 19980101

REACTIONS (12)
  - RENAL FAILURE [None]
  - INJURY [None]
  - MENTAL DISORDER [None]
  - MULTI-ORGAN FAILURE [None]
  - ANXIETY [None]
  - DEPRESSION [None]
  - ANHEDONIA [None]
  - RENAL INJURY [None]
  - UNEVALUABLE EVENT [None]
  - FEAR [None]
  - PAIN [None]
  - DISABILITY [None]
